FAERS Safety Report 6020075-6 (Version None)
Quarter: 2008Q4

REPORT INFORMATION
  Report Type: 
  Country: None (occurrence: None)
  Receive Date: 20081226
  Receipt Date: 20081219
  Transmission Date: 20090506
  Serious: Yes (Hospitalization)
  Sender: FDA-Public Use
  Company Number: NL-ELI_LILLY_AND_COMPANY-NL200812005187

PATIENT
  Sex: Male

DRUGS (4)
  1. SOMATROPIN [Suspect]
     Indication: GROWTH HORMONE DEFICIENCY
     Dosage: 0.2 MG, UNK
     Dates: start: 19960524
  2. THYRAX [Concomitant]
     Indication: SECONDARY HYPOTHYROIDISM
     Dates: start: 19810101
  3. HYDROCORTISONE [Concomitant]
     Indication: SECONDARY ADRENOCORTICAL INSUFFICIENCY
     Dates: start: 19810101
  4. ANDROGEL [Concomitant]
     Indication: SECONDARY HYPOTHYROIDISM
     Dates: start: 19810101

REACTIONS (1)
  - SECONDARY ADRENOCORTICAL INSUFFICIENCY [None]
